FAERS Safety Report 5754180-6 (Version None)
Quarter: 2008Q2

REPORT INFORMATION
  Report Type: 
  Country: None (occurrence: None)
  Receive Date: 20080530
  Receipt Date: 20080519
  Transmission Date: 20081010
  Serious: Yes (Death, Other)
  Sender: FDA-Public Use
  Company Number: ZA-BRISTOL-MYERS SQUIBB COMPANY-14207476

PATIENT

DRUGS (5)
  1. SUSTIVA [Suspect]
     Indication: HIV INFECTION
     Route: 048
  2. ZERIT [Suspect]
     Indication: HIV INFECTION
  3. KALETRA [Suspect]
     Indication: HIV INFECTION
     Dosage: 1 DOSAGE FORM = 400MG LOPINAVIR + 100MG RITONAVIR OR 533MG LOPINAVIR + 133MG RITONAVIR
     Route: 048
  4. EPIVER [Suspect]
     Indication: HIV INFECTION
     Dosage: 150MG TWICE DAILY OR 300 MG ONCE DAILY
  5. TENOFOVIR DISOPROXIL FUMARATE [Suspect]
     Indication: HIV INFECTION

REACTIONS (14)
  - BLOOD CREATINE PHOSPHOKINASE INCREASED [None]
  - BLOOD TRIGLYCERIDES INCREASED [None]
  - DEATH [None]
  - DIARRHOEA [None]
  - DRUG RESISTANCE [None]
  - HEADACHE [None]
  - LIPASE INCREASED [None]
  - LIPOATROPHY [None]
  - LOW DENSITY LIPOPROTEIN INCREASED [None]
  - NAUSEA [None]
  - NEUTROPHIL COUNT DECREASED [None]
  - PAIN [None]
  - RASH MACULAR [None]
  - TRANSAMINASES INCREASED [None]
